FAERS Safety Report 16917679 (Version 1)
Quarter: 2019Q4

REPORT INFORMATION
  Report Type: Spontaneous
  Country: IT (occurrence: IT)
  Receive Date: 20191015
  Receipt Date: 20191015
  Transmission Date: 20200122
  Serious: Yes (Other)
  Sender: FDA-Public Use
  Company Number: IT-SA-2019SA222427

PATIENT
  Age: 47 Year
  Sex: Male

DRUGS (3)
  1. OXALIPLATIN. [Suspect]
     Active Substance: OXALIPLATIN
     Indication: GASTROINTESTINAL NEOPLASM
     Dosage: UNK UNK, QCY
  2. OXALIPLATIN. [Suspect]
     Active Substance: OXALIPLATIN
     Dosage: UNK UNK, QCY
  3. CAPECITABINE. [Concomitant]
     Active Substance: CAPECITABINE
     Indication: GASTROINTESTINAL NEOPLASM
     Dosage: UNK, QCY

REACTIONS (9)
  - Varices oesophageal [Not Recovered/Not Resolved]
  - Portal hypertension [Unknown]
  - Focal nodular hyperplasia [Unknown]
  - Splenomegaly [Unknown]
  - Periportal sinus dilatation [Unknown]
  - Splenorenal shunt [Unknown]
  - Portal shunt [Unknown]
  - Portal vein dilatation [Unknown]
  - Venous injury [Unknown]
